FAERS Safety Report 7380754-5 (Version None)
Quarter: 2011Q1

REPORT INFORMATION
  Report Type: 
  Country: None (occurrence: None)
  Receive Date: 20110329
  Receipt Date: 20100928
  Transmission Date: 20110831
  Serious: Yes (Hospitalization)
  Sender: FDA-Public Use
  Company Number: A0884292A

PATIENT
  Age: 24 Year
  Sex: Male

DRUGS (5)
  1. LAMICTAL [Suspect]
     Route: 048
  2. SILDENAFIL CITRATE [Concomitant]
     Dates: start: 20061017
  3. ADDERALL 10 [Concomitant]
     Dates: start: 20071005
  4. FLONASE [Concomitant]
     Dates: start: 20070326
  5. HYDROXYZINE [Concomitant]
     Dates: start: 20070627

REACTIONS (6)
  - KERATITIS [None]
  - TOXIC EPIDERMAL NECROLYSIS [None]
  - STEVENS-JOHNSON SYNDROME [None]
  - ERYTHEMA MULTIFORME [None]
  - TRICHIASIS [None]
  - CONJUNCTIVITIS [None]
